FAERS Safety Report 9355942 (Version 1)
Quarter: 2013Q2

REPORT INFORMATION
  Report Type: Report from Study
  Country: BE (occurrence: BE)
  Receive Date: 20130619
  Receipt Date: 20130619
  Transmission Date: 20140414
  Serious: Yes (Hospitalization)
  Sender: FDA-Public Use
  Company Number: BE-ROCHE-1233896

PATIENT
  Age: 48 Year
  Sex: Male
  Weight: 77 kg

DRUGS (8)
  1. RITUXIMAB [Suspect]
     Indication: CHRONIC LYMPHOCYTIC LEUKAEMIA
     Route: 042
     Dates: start: 20130523
  2. BLINDED GS-1101 [Suspect]
     Indication: CHRONIC LYMPHOCYTIC LEUKAEMIA
     Route: 048
     Dates: start: 20130523
  3. BENDAMUSTINE [Suspect]
     Indication: CHRONIC LYMPHOCYTIC LEUKAEMIA
     Route: 042
     Dates: start: 20130523
  4. FASTURTEC [Concomitant]
     Route: 065
     Dates: start: 20130523
  5. DOLANTIN [Concomitant]
     Route: 065
     Dates: start: 20130523, end: 20130523
  6. ACICLOVIR [Concomitant]
     Route: 065
     Dates: start: 20130523
  7. METFORMIN [Concomitant]
     Route: 065
     Dates: start: 20130304
  8. NOVOMIX [Concomitant]
     Route: 065
     Dates: start: 20120217

REACTIONS (1)
  - Prophylaxis [Recovered/Resolved]
